FAERS Safety Report 23730600 (Version 1)
Quarter: 2024Q2

REPORT INFORMATION
  Report Type: Other
  Country: US (occurrence: None)
  Receive Date: 20240411
  Receipt Date: 20240411
  Transmission Date: 20240716
  Serious: Yes (Hospitalization)
  Sender: FDA-Public Use
  Company Number: US-ROCHE-3305279

PATIENT
  Age: 46 Year
  Sex: Female
  Weight: 61.29 kg

DRUGS (8)
  1. OCREVUS [Suspect]
     Active Substance: OCRELIZUMAB
     Indication: Multiple sclerosis
     Dosage: SUBSEQUENT DOSES ON: 25/JUL/2022, 24/JAN/2023
     Route: 042
     Dates: start: 20220711
  2. AZITHROMYCIN [Concomitant]
     Active Substance: AZITHROMYCIN
     Dosage: X 5 DAYS
     Dates: start: 20221219
  3. ROBITUSSIN DM [Concomitant]
     Active Substance: DEXTROMETHORPHAN HYDROBROMIDE\GUAIFENESIN
  4. SYMBICORT [Concomitant]
     Active Substance: BUDESONIDE\FORMOTEROL FUMARATE DIHYDRATE
     Dosage: 2 PUFF INHALED
  5. ATIVAN [Concomitant]
     Active Substance: LORAZEPAM
     Indication: Insomnia
  6. TRAZODONE [Concomitant]
     Active Substance: TRAZODONE HYDROCHLORIDE
  7. ALBUTEROL [Concomitant]
     Active Substance: ALBUTEROL
     Indication: Asthma
     Route: 048
     Dates: start: 20221213
  8. TAMIFLU [Concomitant]
     Active Substance: OSELTAMIVIR PHOSPHATE
     Indication: Influenza
     Route: 048
     Dates: start: 20221213, end: 20221215

REACTIONS (1)
  - Pneumonia [Recovered/Resolved]

NARRATIVE: CASE EVENT DATE: 20221219
